FAERS Safety Report 19062720 (Version 3)
Quarter: 2022Q1

REPORT INFORMATION
  Report Type: Spontaneous
  Country: IR (occurrence: IR)
  Receive Date: 20210326
  Receipt Date: 20220224
  Transmission Date: 20220423
  Serious: Yes (Death)
  Sender: FDA-Public Use
  Company Number: IR-PFIZER INC-2021314925

PATIENT
  Age: 35 Year
  Sex: Male

DRUGS (5)
  1. VORICONAZOLE [Suspect]
     Active Substance: VORICONAZOLE
     Indication: Disseminated aspergillosis
     Dosage: 6 MG/KG, 2X/DAY (FOR THE FIRST DAY)
     Route: 042
  2. VORICONAZOLE [Suspect]
     Active Substance: VORICONAZOLE
     Dosage: 4 MG/KG, 2X/DAY
     Route: 042
  3. AMPHOTERICIN B [Suspect]
     Active Substance: AMPHOTERICIN B
     Indication: Disseminated aspergillosis
     Dosage: 5 MG/KG/DAY
  4. MEROPENEM [Concomitant]
     Active Substance: MEROPENEM
     Indication: Disseminated aspergillosis
     Dosage: 2 G, 3X/DAY
  5. VANCOMYCIN [Concomitant]
     Active Substance: VANCOMYCIN
     Indication: Disseminated aspergillosis
     Dosage: 1 G, 2X/DAY

REACTIONS (1)
  - Drug ineffective [Fatal]
